FAERS Safety Report 26007722 (Version 1)
Quarter: 2025Q4

REPORT INFORMATION
  Report Type: Spontaneous
  Country: US (occurrence: None)
  Receive Date: 20251106
  Receipt Date: 20251106
  Transmission Date: 20260118
  Serious: No
  Sender: FDA-CTU
  Company Number: None

PATIENT
  Age: 26 Year
  Sex: Female

DRUGS (1)
  1. RAVICTI [Suspect]
     Active Substance: GLYCEROL PHENYLBUTYRATE
     Indication: Hyperornithinaemia-hyperammonaemia-homocitrullinuria syndrome
     Dosage: OTHER STRENGTH : 1.1GM/ML;?FREQUENCY : 3 TIMES A DAY;?OTHER ROUTE : GASTROSTOMY TUBE;?
     Route: 050
     Dates: start: 20210929

REACTIONS (1)
  - Ammonia increased [None]

NARRATIVE: CASE EVENT DATE: 20250927
